FAERS Safety Report 8495046-0 (Version None)
Quarter: 2012Q3

REPORT INFORMATION
  Report Type: 
  Country: None (occurrence: None)
  Receive Date: 20120709
  Receipt Date: 20120703
  Transmission Date: 20120928
  Serious: Yes (Hospitalization, Other)
  Sender: FDA-Public Use
  Company Number: PHHY2008JP10678

PATIENT
  Sex: Male
  Weight: 64 kg

DRUGS (12)
  1. SIMULECT [Suspect]
     Dosage: 20 MG, ONCE/SINGLE
     Route: 042
     Dates: start: 20070520, end: 20070520
  2. CELLCEPT [Suspect]
     Indication: RENAL TRANSPLANT
     Dosage: 1500 MG/DAY
     Route: 048
     Dates: start: 20070517
  3. SANDIMMUNE [Concomitant]
     Indication: RENAL TRANSPLANT
     Dosage: 166 MG
     Route: 042
     Dates: start: 20070516, end: 20070516
  4. CINALONG [Concomitant]
     Indication: HYPERTENSION
     Dosage: 10 MG
     Dates: start: 20071015
  5. DIOVAN [Concomitant]
     Indication: HYPERTENSION
     Dosage: 80 MG
     Dates: start: 20070820
  6. SOLU-MEDROL [Concomitant]
     Indication: RENAL TRANSPLANT
     Dosage: 250 MG
     Route: 042
     Dates: start: 20070516, end: 20070516
  7. ZYLORIC ^FRESENIUS^ [Concomitant]
     Indication: HYPERURICAEMIA
     Dosage: 50 MG
     Route: 048
     Dates: start: 20071015, end: 20080120
  8. PREDNISOLONE [Concomitant]
     Dosage: 30 MG
     Route: 048
     Dates: start: 20070523
  9. NEORAL [Suspect]
     Indication: RENAL TRANSPLANT
     Dosage: 500 MG/DAY
     Route: 048
     Dates: start: 20070513, end: 20070523
  10. PREDNISOLONE [Concomitant]
     Indication: RENAL TRANSPLANT
     Dosage: 50 MG
     Route: 042
     Dates: start: 20070517, end: 20070522
  11. SIMULECT [Suspect]
     Indication: RENAL TRANSPLANT
     Dosage: 20 MG, ONCE/SINGLE
     Route: 042
     Dates: start: 20070516, end: 20070516
  12. ALLOPURINOL [Concomitant]
     Indication: HYPERURICAEMIA
     Dosage: 100 MG
     Route: 048
     Dates: start: 20080121

REACTIONS (9)
  - CYTOMEGALOVIRUS TEST POSITIVE [None]
  - POST TRANSPLANT LYMPHOPROLIFERATIVE DISORDER [None]
  - EPSTEIN-BARR VIRUS INFECTION [None]
  - CYTOMEGALOVIRUS INFECTION [None]
  - PYREXIA [None]
  - HEPATIC NEOPLASM [None]
  - HEPATITIS B ANTIBODY POSITIVE [None]
  - PRIMARY MEDIASTINAL LARGE B-CELL LYMPHOMA [None]
  - BLOOD URIC ACID INCREASED [None]
